FAERS Safety Report 5828779-2 (Version None)
Quarter: 2008Q3

REPORT INFORMATION
  Report Type: 
  Country: None (occurrence: None)
  Receive Date: 20080731
  Receipt Date: 20080725
  Transmission Date: 20090109
  Serious: Yes (Disabling)
  Sender: FDA-Public Use
  Company Number: US-MERCK-0805USA00460

PATIENT
  Age: 56 Year
  Sex: Female
  Weight: 67 kg

DRUGS (3)
  1. FOSAMAX [Suspect]
     Indication: OSTEOPENIA
     Route: 048
     Dates: start: 20020901, end: 20060101
  2. FEXOFENADINE HYDROCHLORIDE [Concomitant]
     Indication: SEASONAL ALLERGY
     Route: 065
     Dates: start: 20020101
  3. [THERAPY UNSPECIFIED] [Concomitant]
     Indication: BLOOD PRESSURE
     Route: 065
     Dates: start: 19880101

REACTIONS (11)
  - ADVERSE DRUG REACTION [None]
  - BACK INJURY [None]
  - FALL [None]
  - FOOT FRACTURE [None]
  - GINGIVAL SWELLING [None]
  - JAW DISORDER [None]
  - MICTURITION URGENCY [None]
  - MUCOSAL ULCERATION [None]
  - OSTEONECROSIS [None]
  - POLLAKIURIA [None]
  - URINARY INCONTINENCE [None]
